FAERS Safety Report 5934495-9 (Version None)
Quarter: 2008Q4

REPORT INFORMATION
  Report Type: 
  Country: None (occurrence: None)
  Receive Date: 20081029
  Receipt Date: 20081020
  Transmission Date: 20090506
  Serious: Yes (Other)
  Sender: FDA-Public Use
  Company Number: US-JNJFOC-20081005179

PATIENT
  Age: 8 Month
  Sex: Male
  Weight: 9.98 kg

DRUGS (2)
  1. TYLENOL (CAPLET) [Suspect]
     Indication: RHINORRHOEA
     Route: 048
  2. TYLENOL (CAPLET) [Suspect]
     Indication: TEETHING
     Dosage: 80 MG APPROXIMATELY 3-4 TIMES
     Route: 048

REACTIONS (3)
  - DYSPNOEA [None]
  - PRODUCT QUALITY ISSUE [None]
  - URTICARIA [None]
